FAERS Safety Report 23151709 (Version 1)
Quarter: 2023Q4

REPORT INFORMATION
  Report Type: Spontaneous
  Country: US (occurrence: None)
  Receive Date: 20231107
  Receipt Date: 20231107
  Transmission Date: 20240110
  Serious: No
  Sender: FDA-Public Use
  Company Number: US-ARIS GLOBAL-VLR202306-000002

PATIENT
  Age: 72 Year
  Sex: Male

DRUGS (3)
  1. MOVANTIK [Suspect]
     Active Substance: NALOXEGOL OXALATE
     Indication: Constipation
     Dosage: 12.5 MG, 25 MG TABLET
     Route: 048
     Dates: start: 20230601
  2. MOVANTIK [Suspect]
     Active Substance: NALOXEGOL OXALATE
  3. ACETAMINOPHEN\HYDROCODONE [Concomitant]
     Active Substance: ACETAMINOPHEN\HYDROCODONE
     Indication: Pain
     Dosage: 10/325 MG
     Route: 065

REACTIONS (2)
  - Drug ineffective [Unknown]
  - Product administration error [Unknown]

NARRATIVE: CASE EVENT DATE: 20230601
